FAERS Safety Report 18289471 (Version 1)
Quarter: 2020Q3

REPORT INFORMATION
  Report Type: Spontaneous
  Country: US (occurrence: US)
  Receive Date: 20200921
  Receipt Date: 20200921
  Transmission Date: 20201103
  Serious: No
  Sender: FDA-Public Use
  Company Number: US-MYLANLABS-2020M1078395

PATIENT
  Age: 78 Year
  Sex: Female
  Weight: 44 kg

DRUGS (2)
  1. DIAZEPAM TABLETS USP [Suspect]
     Active Substance: DIAZEPAM
     Indication: FEELING OF RELAXATION
     Dosage: 5 MILLIGRAM, BID
     Route: 048
     Dates: start: 20200901, end: 20200903
  2. ATIVAN [Suspect]
     Active Substance: LORAZEPAM
     Indication: PRODUCT USED FOR UNKNOWN INDICATION
     Dosage: 1 MILLIGRAM, TID
     Dates: start: 20200904

REACTIONS (8)
  - Vision blurred [Recovered/Resolved]
  - Therapeutic product effect increased [Recovered/Resolved]
  - Panic attack [Recovered/Resolved]
  - Drooling [Recovered/Resolved]
  - Sleep disorder [Recovered/Resolved]
  - Muscle discomfort [Recovered/Resolved]
  - Feeling abnormal [Recovered/Resolved]
  - Malaise [Recovered/Resolved]

NARRATIVE: CASE EVENT DATE: 20200901
